FAERS Safety Report 12194599 (Version 1)
Quarter: 2016Q1

REPORT INFORMATION
  Report Type: Report from Study
  Country: CA (occurrence: CA)
  Receive Date: 20160321
  Receipt Date: 20160321
  Transmission Date: 20160526
  Serious: Yes (Hospitalization)
  Sender: FDA-Public Use
  Company Number: PHHY2014CA109642

PATIENT
  Age: 73 Year
  Sex: Female

DRUGS (2)
  1. SANDOSTATIN [Suspect]
     Active Substance: OCTREOTIDE ACETATE
     Indication: NEUROENDOCRINE TUMOUR
     Dosage: 50 UG, UNK
     Route: 058
     Dates: start: 20140718
  2. SANDOSTATIN LAR DEPOT [Suspect]
     Active Substance: OCTREOTIDE ACETATE
     Indication: NEUROENDOCRINE TUMOUR
     Dosage: 30 MG, QMO (EVERY 4 WEEKS)
     Route: 030
     Dates: start: 20140729

REACTIONS (7)
  - Small intestinal obstruction [Recovered/Resolved]
  - Hiatus hernia [Recovered/Resolved]
  - Abdominal pain [Recovered/Resolved]
  - Rash generalised [Unknown]
  - Fatigue [Unknown]
  - Abdominal pain upper [Recovered/Resolved]
  - Pruritus [Unknown]

NARRATIVE: CASE EVENT DATE: 2014
